FAERS Safety Report 12584053 (Version 1)
Quarter: 2016Q3

REPORT INFORMATION
  Report Type: Spontaneous
  Country: IT (occurrence: IT)
  Receive Date: 20160722
  Receipt Date: 20160722
  Transmission Date: 20161109
  Serious: Yes (Other)
  Sender: FDA-Public Use
  Company Number: IT-ASTRAZENECA-2016SE77601

PATIENT
  Age: 26077 Day
  Sex: Female

DRUGS (10)
  1. BRILIQUE [Suspect]
     Active Substance: TICAGRELOR
     Indication: ACUTE CORONARY SYNDROME
     Route: 048
     Dates: start: 20150512, end: 20160707
  2. HUMULIN (INSULIN) [Concomitant]
     Dosage: 58.0DF UNKNOWN
     Route: 058
  3. NOBISTAR (NEBIVOLOL+THIAZIDES) [Concomitant]
  4. ZYLORIC [Concomitant]
     Active Substance: ALLOPURINOL
     Indication: HYPERURICAEMIA
     Dosage: 150 MG, 300 MG TABLETS
     Route: 048
  5. ANTRA (OMEPRAZOLE) [Concomitant]
     Active Substance: OMEPRAZOLE
     Dosage: 20.0MG UNKNOWN
     Route: 048
  6. TRIATEC (RAMIPRIL) [Concomitant]
     Active Substance: RAMIPRIL
     Indication: MYOCARDIAL ISCHAEMIA
     Dosage: 5.0MG UNKNOWN
     Route: 048
  7. LANTUS [Concomitant]
     Active Substance: INSULIN GLARGINE
     Indication: DIABETES MELLITUS
     Dosage: 18.0DF UNKNOWN
     Route: 058
  8. ESKIM (OMEGA-3-TRIGLICERIDES) [Concomitant]
     Dosage: 100.0MG UNKNOWN
     Route: 048
  9. CARDIOASPIRIN (ASA) [Concomitant]
     Active Substance: ASPIRIN
     Dosage: 100.0MG UNKNOWN
     Route: 048
  10. TORVAST [Concomitant]
     Active Substance: ATORVASTATIN
     Dosage: 80.0MG UNKNOWN
     Route: 048

REACTIONS (3)
  - Urinary tract disorder [Unknown]
  - Acute kidney injury [Unknown]
  - Dyspnoea [Recovering/Resolving]

NARRATIVE: CASE EVENT DATE: 20160707
